FAERS Safety Report 19899583 (Version 1)
Quarter: 2021Q3

REPORT INFORMATION
  Report Type: Spontaneous
  Country: DE (occurrence: DE)
  Receive Date: 20210929
  Receipt Date: 20210929
  Transmission Date: 20211014
  Serious: Yes (Hospitalization)
  Sender: FDA-Public Use
  Company Number: DE-MYLANLABS-2021M1066572

PATIENT
  Age: 82 Year
  Sex: Female

DRUGS (5)
  1. BISOPROLOL [Suspect]
     Active Substance: BISOPROLOL
     Indication: PRODUCT USED FOR UNKNOWN INDICATION
     Dosage: TABLETTEN
     Route: 048
  2. TORASEMID [Concomitant]
     Active Substance: TORSEMIDE
     Dosage: 10 MG, 1?0?0?0, TABLETTEN
     Route: 048
  3. APIXABAN [Concomitant]
     Active Substance: APIXABAN
     Dosage: 5 MG, 1?0?1?0, TABLETTEN
     Route: 048
  4. LEVOTHYROXINUM NATRICUM [Concomitant]
     Dosage: 0.125 MG, 1?0?0?0, TABLETTEN
     Route: 048
  5. AMLODIPINE W/OLMESARTAN [Concomitant]
     Active Substance: AMLODIPINE MALEATE\OLMESARTAN MEDOXOMIL
     Dosage: 10 PER 40 MG, 1?0?0?0, TABLETTEN
     Route: 048

REACTIONS (5)
  - Atrial fibrillation [Recovering/Resolving]
  - Dizziness [Recovering/Resolving]
  - Medication error [Unknown]
  - Syncope [Recovering/Resolving]
  - Bradycardia [Recovering/Resolving]
